FAERS Safety Report 12405486 (Version 1)
Quarter: 2016Q2

REPORT INFORMATION
  Report Type: Spontaneous
  Country: IT (occurrence: IT)
  Receive Date: 20160525
  Receipt Date: 20160525
  Transmission Date: 20160815
  Serious: Yes (Other)
  Sender: FDA-Public Use
  Company Number: PHHY2016IT070423

PATIENT
  Age: 67 Year
  Sex: Male

DRUGS (1)
  1. CEFTRIAXONE. [Suspect]
     Active Substance: CEFTRIAXONE
     Indication: BRONCHITIS
     Dosage: 1 DF, ONCE/SINGLE
     Route: 030
     Dates: start: 20160316, end: 20160316

REACTIONS (3)
  - Pruritus generalised [Recovering/Resolving]
  - Vomiting [Recovering/Resolving]
  - Chest pain [Recovering/Resolving]

NARRATIVE: CASE EVENT DATE: 20160316
